FAERS Safety Report 6129208-4 (Version None)
Quarter: 2009Q1

REPORT INFORMATION
  Report Type: 
  Country: None (occurrence: None)
  Receive Date: 20090323
  Receipt Date: 20090323
  Transmission Date: 20090719
  Serious: Yes (Disabling)
  Sender: FDA-Public Use
  Company Number: None

PATIENT
  Age: 65 Year
  Sex: Female
  Weight: 61.2356 kg

DRUGS (1)
  1. ETHAMBUTOL HCL [Suspect]
     Indication: MYCOBACTERIAL INFECTION
     Dosage: 3 TABLETS DAILY PO
     Route: 048

REACTIONS (6)
  - CONDITION AGGRAVATED [None]
  - DRUG TOXICITY [None]
  - HYPOAESTHESIA [None]
  - LUNG DISORDER [None]
  - VISION BLURRED [None]
  - VISUAL ACUITY REDUCED [None]
